FAERS Safety Report 10210085 (Version 1)
Quarter: 2014Q2

REPORT INFORMATION
  Report Type: Spontaneous
  Country: US (occurrence: US)
  Receive Date: 20140602
  Receipt Date: 20140602
  Transmission Date: 20141212
  Serious: Yes (Other)
  Sender: FDA-Public Use
  Company Number: US-BEH-2014042807

PATIENT
  Sex: Male
  Weight: 78 kg

DRUGS (37)
  1. PRIVIGEN [Suspect]
     Indication: IMMUNODEFICIENCY COMMON VARIABLE
     Route: 042
  2. PRIVIGEN [Suspect]
     Indication: HYPOTHYROIDISM
     Route: 042
  3. SINGULAIR [Concomitant]
  4. PROTONIX [Concomitant]
  5. L-LYSINE [Concomitant]
  6. MULTIVITAMIN [Concomitant]
  7. ASPIRIN [Concomitant]
  8. NORCO [Concomitant]
  9. INDERAL-LA [Concomitant]
  10. ACETAMINOPHEN [Concomitant]
  11. DEXTROSE [Concomitant]
  12. DIPHENHYDRAMINE [Concomitant]
  13. NORMAL SALINE [Concomitant]
  14. EPI-PEN [Concomitant]
  15. PROPANOLOL [Concomitant]
  16. LEVAQUIN [Concomitant]
  17. EFFEXOR [Concomitant]
  18. RELPAX [Concomitant]
  19. SYNTHROID [Concomitant]
  20. CLONAZEPAM [Concomitant]
  21. MEDROL DOSE PAK [Concomitant]
  22. AMITRIPTYLINE [Concomitant]
  23. VITAMIN D [Concomitant]
  24. ELAVIL [Concomitant]
  25. TRANSDERM SCOPOLAMINE PATCH [Concomitant]
  26. TUSSIN [Concomitant]
  27. PROAIR [Concomitant]
  28. OMNARIS [Concomitant]
  29. ADVIL [Concomitant]
  30. FLUNISOLIDE [Concomitant]
  31. ASCORBIC ACID [Concomitant]
  32. RESTASIS [Concomitant]
  33. PATANOL [Concomitant]
  34. LOVAZA [Concomitant]
  35. WELCHOL [Concomitant]
  36. ZYRTEC [Concomitant]
  37. CLARINEX [Concomitant]

REACTIONS (1)
  - Postoperative wound infection [Unknown]
